FAERS Safety Report 19461764 (Version 3)
Quarter: 2021Q4

REPORT INFORMATION
  Report Type: Report from Study
  Country: None (occurrence: NL)
  Receive Date: 20210625
  Receipt Date: 20211019
  Transmission Date: 20220303
  Serious: Yes (Hospitalization, Other)
  Sender: FDA-Public Use
  Company Number: NL-ABBVIE-20K-114-3420643-00

PATIENT
  Sex: Male

DRUGS (13)
  1. CARBIDOPA\LEVODOPA [Suspect]
     Active Substance: CARBIDOPA\LEVODOPA
     Indication: Parkinson^s disease
     Dosage: REMAINS AT 24 HOURS  5.5ML; CD: 4.8ML/H; ED: 2.0ML; CND: 1.5ML/H; END: 2.0ML
     Route: 050
     Dates: start: 20200406, end: 20200406
  2. CARBIDOPA\LEVODOPA [Suspect]
     Active Substance: CARBIDOPA\LEVODOPA
     Dosage: MD 5.5, CD 4.8, ED 2.0, CND 1.5, END 2.0; 24HRS/DAY,CND:2.0ML/H,REMAINS AT 24 HOURS
     Route: 050
     Dates: start: 20200406, end: 20200406
  3. CARBIDOPA\LEVODOPA [Suspect]
     Active Substance: CARBIDOPA\LEVODOPA
     Dosage: MD 5.5, CD 4.8, ED 2.0, CND 2.5, END 2.0; 24HRS/DAY,CND:2.5ML/H?REMAINS AT 24 HOURS
     Route: 050
     Dates: start: 20200406, end: 20200406
  4. CARBIDOPA\LEVODOPA [Suspect]
     Active Substance: CARBIDOPA\LEVODOPA
     Dosage: 5.5ML; CD: 4.8ML/H; ED: 2.0ML; CND: 1.5ML/H; END: 2.0ML REMAINS AT 24 HR
     Route: 050
     Dates: start: 20200406
  5. CARBIDOPA\LEVODOPA [Suspect]
     Active Substance: CARBIDOPA\LEVODOPA
     Dosage: CD 4.9ML/H REMAINS AT 24 HOURS CND:2.0ML/H
     Route: 050
  6. CARBIDOPA\LEVODOPA [Suspect]
     Active Substance: CARBIDOPA\LEVODOPA
     Dosage: 5.5ML; CD: 4.0ML/H; ED: 2.0ML; END: 2.0ML CND:2.5ML/H?REMAINS AT 24 HOURS
     Route: 050
  7. CARBIDOPA\LEVODOPA [Suspect]
     Active Substance: CARBIDOPA\LEVODOPA
     Dosage: MD: 5.5 ML, CD: 3.7 ML/H, ED: 2.0 ML, CND: 3.0 ML/H, END: 2.0 ML;
     Route: 050
  8. CARBIDOPA\LEVODOPA [Suspect]
     Active Substance: CARBIDOPA\LEVODOPA
     Dosage: CD 4.9ML/H
     Route: 050
  9. CARBIDOPA\LEVODOPA [Suspect]
     Active Substance: CARBIDOPA\LEVODOPA
     Dosage: 5.5ML; CD: 4.0ML/H; ED: 2.0ML; CND: 3.0ML/H; END: 2.0ML
     Route: 050
  10. CARBIDOPA\LEVODOPA [Suspect]
     Active Substance: CARBIDOPA\LEVODOPA
     Dosage: MD: 5.5 ML, CD: 3.7 ML/H, ED: 2.0 ML, CND: 3.0 ML/H, END: 2.0?ML;
     Route: 050
  11. CARBIDOPA\LEVODOPA [Suspect]
     Active Substance: CARBIDOPA\LEVODOPA
     Dosage: MD: 5.0 ML, CD: 3.6 ML/H, ED: 2.5 ML, CND: 3.0 ML/H;
     Route: 050
  12. MOVICOLON [Concomitant]
     Active Substance: POLYETHYLENE GLYCOL 3350\POTASSIUM CHLORIDE\SODIUM BICARBONATE\SODIUM CHLORIDE
     Indication: Abnormal faeces
  13. CLOZAPINE [Concomitant]
     Active Substance: CLOZAPINE
     Indication: Hallucination

REACTIONS (43)
  - Cognitive disorder [Not Recovered/Not Resolved]
  - Euthanasia [Not Recovered/Not Resolved]
  - General physical health deterioration [Unknown]
  - On and off phenomenon [Not Recovered/Not Resolved]
  - Decubitus ulcer [Not Recovered/Not Resolved]
  - Bowel movement irregularity [Recovered/Resolved]
  - Depressed mood [Not Recovered/Not Resolved]
  - Memory impairment [Not Recovered/Not Resolved]
  - Patient dissatisfaction with device [Not Recovered/Not Resolved]
  - Paraesthesia [Not Recovered/Not Resolved]
  - Device kink [Recovered/Resolved]
  - Hyperphagia [Unknown]
  - Disinhibition [Not Recovered/Not Resolved]
  - Hypermobility syndrome [Not Recovered/Not Resolved]
  - Sleep disorder [Recovered/Resolved]
  - Tension [Not Recovered/Not Resolved]
  - Muscle rigidity [Not Recovered/Not Resolved]
  - Weight decreased [Recovered/Resolved]
  - Device dislocation [Unknown]
  - Salivary hypersecretion [Not Recovered/Not Resolved]
  - Dyspnoea [Not Recovered/Not Resolved]
  - Fear [Not Recovered/Not Resolved]
  - Weight decreased [Recovered/Resolved]
  - Gait disturbance [Not Recovered/Not Resolved]
  - Impulsive behaviour [Not Recovered/Not Resolved]
  - Confusional state [Recovered/Resolved]
  - Dyskinesia [Not Recovered/Not Resolved]
  - Freezing phenomenon [Not Recovered/Not Resolved]
  - On and off phenomenon [Recovered/Resolved]
  - Hallucination [Not Recovered/Not Resolved]
  - Agitation [Recovered/Resolved]
  - Movement disorder [Not Recovered/Not Resolved]
  - Stress [Recovered/Resolved]
  - Respite care [Recovered/Resolved]
  - Feeling abnormal [Recovered/Resolved]
  - Therapeutic product effect incomplete [Not Recovered/Not Resolved]
  - Confusional state [Not Recovered/Not Resolved]
  - Unevaluable event [Not Recovered/Not Resolved]
  - Device kink [Unknown]
  - Hyperkinesia [Not Recovered/Not Resolved]
  - Stoma site discharge [Not Recovered/Not Resolved]
  - Panic reaction [Not Recovered/Not Resolved]
  - Condition aggravated [Not Recovered/Not Resolved]

NARRATIVE: CASE EVENT DATE: 20200101
